FAERS Safety Report 4898086-3 (Version None)
Quarter: 2006Q1

REPORT INFORMATION
  Report Type: 
  Country: None (occurrence: None)
  Receive Date: 20060201
  Receipt Date: 20060123
  Transmission Date: 20060701
  Serious: Yes (Other)
  Sender: FDA-Public Use
  Company Number: PHBS2006ES01244

PATIENT
  Age: 38 Year
  Sex: Female

DRUGS (4)
  1. ZOMETA [Suspect]
     Indication: BONE NEOPLASM
     Dosage: 4 MG, QMO
     Route: 042
     Dates: start: 20030311, end: 20050413
  2. DOXORUBICIN [Concomitant]
     Indication: BREAST CANCER FEMALE
     Route: 065
  3. TAXOL [Concomitant]
     Indication: BREAST CANCER FEMALE
     Dosage: 6 MG/ML
     Route: 065
  4. TAMOXIFEN CITRATE [Concomitant]
     Route: 065

REACTIONS (2)
  - OSTEONECROSIS [None]
  - TOOTH EXTRACTION [None]
